FAERS Safety Report 4505207-0 (Version None)
Quarter: 2004Q4

REPORT INFORMATION
  Report Type: 
  Country: None (occurrence: None)
  Receive Date: 20041015
  Receipt Date: 20040730
  Transmission Date: 20050328
  Serious: Yes (Other)
  Sender: FDA-Public Use
  Company Number: 2004047490

PATIENT
  Age: 54 Year
  Sex: Female
  Weight: 72.5755 kg

DRUGS (2)
  1. NEURONTIN [Suspect]
     Indication: ARTHRITIS
     Dosage: 200 MG (100 MG, 1 IN 1 D), ORAL
     Route: 048
     Dates: start: 20030101
  2. ALL OTHER THERAPEUTIC PRODUCTS (ALL OTHER THERAPEUTIC PRODUCTS) [Concomitant]

REACTIONS (4)
  - ARTHRITIS [None]
  - DEPRESSION [None]
  - MYOCARDIAL INFARCTION [None]
  - SOMNOLENCE [None]
